FAERS Safety Report 8606771 (Version 2)
Quarter: 2013Q2

REPORT INFORMATION
  Report Type: Spontaneous
  Country: US (occurrence: US)
  Receive Date: 20120611
  Receipt Date: 20130617
  Transmission Date: 20140414
  Serious: Yes (Hospitalization, Disabling)
  Sender: FDA-Public Use
  Company Number: US-ASTRAZENECA-2012SE35461

PATIENT
  Age: 46 Year
  Sex: Female

DRUGS (16)
  1. NEXIUM [Suspect]
     Indication: HYPERCHLORHYDRIA
     Route: 048
     Dates: start: 2000
  2. NEXIUM [Suspect]
     Indication: GASTROOESOPHAGEAL REFLUX DISEASE
     Route: 048
     Dates: start: 2000
  3. NEXIUM [Suspect]
     Indication: GASTRITIS
     Route: 048
     Dates: start: 2000
  4. NEXIUM [Suspect]
     Indication: HYPERCHLORHYDRIA
     Route: 048
     Dates: start: 20090313
  5. NEXIUM [Suspect]
     Indication: GASTROOESOPHAGEAL REFLUX DISEASE
     Route: 048
     Dates: start: 20090313
  6. NEXIUM [Suspect]
     Indication: GASTRITIS
     Route: 048
     Dates: start: 20090313
  7. PRILOSEC [Suspect]
     Route: 048
  8. PREVACID [Concomitant]
  9. PROTONIX [Concomitant]
     Dates: start: 2011
  10. AXID [Concomitant]
     Dosage: TWO DAILY
  11. ZANTAC [Concomitant]
  12. TUMS [Concomitant]
  13. GAVISCON [Concomitant]
  14. ROLAIDS [Concomitant]
  15. MYLANTA [Concomitant]
  16. ESTRACE [Concomitant]
     Dates: start: 1987

REACTIONS (12)
  - Spina bifida [Unknown]
  - Muscular weakness [Unknown]
  - Blood pressure abnormal [Unknown]
  - Heart rate abnormal [Unknown]
  - Cholera [Unknown]
  - Osteoporosis [Unknown]
  - Foot fracture [Unknown]
  - Carpal tunnel syndrome [Unknown]
  - Arthritis [Unknown]
  - Diabetes mellitus [Unknown]
  - Vitamin D deficiency [Unknown]
  - Chondritis [Unknown]
